FAERS Safety Report 20798930 (Version 1)
Quarter: 2022Q2

REPORT INFORMATION
  Report Type: Spontaneous
  Country: US (occurrence: US)
  Receive Date: 20220507
  Receipt Date: 20220507
  Transmission Date: 20220720
  Serious: No
  Sender: FDA-Public Use
  Company Number: US-BRISTOL-MYERS SQUIBB COMPANY-2022-033034

PATIENT
  Age: 79 Year
  Sex: Female

DRUGS (3)
  1. REVLIMID [Suspect]
     Active Substance: LENALIDOMIDE
     Indication: Plasma cell myeloma
     Dosage: TAKE ON CAP BY MOUTH DAILY FOR 21 DAYS ON AND 7 DAYS OFF
     Route: 048
     Dates: start: 20220311
  2. VITAMINS [Concomitant]
     Active Substance: VITAMINS
     Indication: Plasma cell myeloma
     Dosage: Q-SORB CAP 150MG
     Route: 065
  3. Darzalex sol [Concomitant]
     Indication: Plasma cell myeloma
     Dosage: 100MG/5M
     Route: 065

REACTIONS (1)
  - Pruritus [Unknown]
